FAERS Safety Report 4311732-8 (Version None)
Quarter: 2004Q1

REPORT INFORMATION
  Report Type: 
  Country: None (occurrence: None)
  Receive Date: 20040304
  Receipt Date: 20040304
  Transmission Date: 20041129
  Serious: No
  Sender: FDA-Public Use
  Company Number: None

PATIENT
  Age: 87 Year
  Sex: Female
  Weight: 48.0813 kg

DRUGS (1)
  1. CEFEPIME 1 G IV VIAL [Suspect]
     Indication: PNEUMONIA
     Dosage: 1 G IV
     Route: 042
     Dates: start: 20040223

REACTIONS (4)
  - HYPERHIDROSIS [None]
  - SALIVARY HYPERSECRETION [None]
  - TACHYCARDIA [None]
  - TACHYPNOEA [None]
